FAERS Safety Report 24575298 (Version 1)
Quarter: 2024Q4

REPORT INFORMATION
  Report Type: Report from Study
  Country: HU (occurrence: HU)
  Receive Date: 20241104
  Receipt Date: 20241104
  Transmission Date: 20250114
  Serious: Yes (Other)
  Sender: ABBVIE
  Company Number: HU-ABBVIE-5981109

PATIENT
  Age: 47 Year
  Sex: Female
  Weight: 60 kg

DRUGS (3)
  1. UPADACITINIB [Suspect]
     Active Substance: UPADACITINIB
     Indication: Dermatitis atopic
     Route: 048
     Dates: start: 20231207
  2. ACYCLOVIR [Concomitant]
     Active Substance: ACYCLOVIR
     Indication: Herpes virus infection
     Route: 048
     Dates: start: 20240606, end: 20240911
  3. OCTENIDINE HYDROCHLORIDE, PHENOXYETHANOL [Concomitant]
     Indication: Herpes virus infection
     Route: 061
     Dates: start: 20240606

REACTIONS (1)
  - Disseminated herpes simplex [Not Recovered/Not Resolved]

NARRATIVE: CASE EVENT DATE: 20240912
